FAERS Safety Report 14921682 (Version 1)
Quarter: 2018Q2

REPORT INFORMATION
  Report Type: Spontaneous
  Country: US (occurrence: US)
  Receive Date: 20180522
  Receipt Date: 20180522
  Transmission Date: 20180711
  Serious: Yes (Other)
  Sender: FDA-Public Use
  Company Number: US-AUROBINDO-AUR-APL-2018-025941

PATIENT

DRUGS (1)
  1. AMIODARONE HYDROCHLORIDE. [Suspect]
     Active Substance: AMIODARONE HYDROCHLORIDE
     Indication: LUNG TRANSPLANT
     Dosage: UNK
     Route: 065

REACTIONS (4)
  - Bradycardia [Unknown]
  - Vomiting [Unknown]
  - Intestinal perforation [Unknown]
  - Abdominal pain [Unknown]
